FAERS Safety Report 8052264 (Version 3)
Quarter: 2017Q1

REPORT INFORMATION
  Report Type: Spontaneous
  Country: JP (occurrence: JP)
  Receive Date: 20110725
  Receipt Date: 20170216
  Transmission Date: 20170429
  Serious: Yes (Other)
  Sender: FDA-Public Use
  Company Number: PHHY2011JP63574

PATIENT
  Age: 68 Year
  Sex: Male

DRUGS (1)
  1. CICLOSPORIN [Suspect]
     Active Substance: CYCLOSPORINE
     Indication: CHRONIC ACTINIC DERMATITIS
     Dosage: UNK
     Route: 048
     Dates: start: 2001, end: 2001

REACTIONS (3)
  - Renal impairment [Not Recovered/Not Resolved]
  - Renal failure [Unknown]
  - Product use issue [Unknown]

NARRATIVE: CASE EVENT DATE: 2001
